FAERS Safety Report 6528534-4 (Version None)
Quarter: 2010Q1

REPORT INFORMATION
  Report Type: 
  Country: None (occurrence: None)
  Receive Date: 20100106
  Receipt Date: 20091222
  Transmission Date: 20100710
  Serious: Yes (Congenital Anomaly)
  Sender: FDA-Public Use
  Company Number: US-ELI_LILLY_AND_COMPANY-US200912005268

PATIENT

DRUGS (2)
  1. HUMALOG [Suspect]
     Dosage: 16 U, UNK
     Route: 064
  2. LANTUS [Concomitant]
     Route: 064

REACTIONS (3)
  - CONGENITAL BOWING OF LONG BONES [None]
  - DRUG EXPOSURE DURING PREGNANCY [None]
  - SYNDACTYLY [None]
